FAERS Safety Report 9825735 (Version 1)
Quarter: 2013Q4

REPORT INFORMATION
  Report Type: Spontaneous
  Country: US (occurrence: None)
  Receive Date: 20131223
  Receipt Date: 20131223
  Transmission Date: 20140711
  Serious: Yes (Other)
  Sender: FDA-Public Use
  Company Number: 220180LEO

PATIENT
  Age: 66 Year
  Sex: Male

DRUGS (5)
  1. PICATO [Suspect]
     Indication: ACTINIC KERATOSIS
     Dates: start: 20130114
  2. B.P. MEDICATION (ANTIHYPERTENSIVES) [Concomitant]
  3. IRREGULAR HEART RHYTHM MEDICATION (ANTIARRHYTHMICS, CLASS I AND III) [Concomitant]
  4. CHOLESTEROL MED (LIPID MODIFYING AGENTS) [Concomitant]
  5. BLOOD THINNER (ANTICOAGULANT CITRATE DEXTROSE) [Concomitant]

REACTIONS (5)
  - Application site pain [None]
  - Application site exfoliation [None]
  - Application site pruritus [None]
  - Application site erythema [None]
  - Incorrect dose administered [None]
